FAERS Safety Report 7075945-7 (Version None)
Quarter: 2010Q4

REPORT INFORMATION
  Report Type: 
  Country: None (occurrence: None)
  Receive Date: 20101101
  Receipt Date: 20101022
  Transmission Date: 20110411
  Serious: No
  Sender: FDA-Public Use
  Company Number: US-BIOGENIDEC-2010BI037310

PATIENT
  Age: 40 Year
  Sex: Female

DRUGS (1)
  1. TYSABRI [Suspect]
     Indication: MULTIPLE SCLEROSIS
     Route: 042
     Dates: start: 20100203

REACTIONS (7)
  - AMNESIA [None]
  - CONSTIPATION [None]
  - CRYING [None]
  - DIARRHOEA [None]
  - FALL [None]
  - HEAD INJURY [None]
  - LOSS OF CONTROL OF LEGS [None]
